FAERS Safety Report 25767141 (Version 2)
Quarter: 2025Q3

REPORT INFORMATION
  Report Type: Spontaneous
  Country: US (occurrence: US)
  Receive Date: 20250905
  Receipt Date: 20250915
  Transmission Date: 20251021
  Serious: Yes (Other)
  Sender: ORGANON
  Company Number: US-ORGANON-O2509USA000224

PATIENT
  Age: 59 Year
  Sex: Female

DRUGS (1)
  1. SINGULAIR [Suspect]
     Active Substance: MONTELUKAST SODIUM
     Dosage: 1 TABLET BY MOUTH EVERY NIGHT AT BEDTIME
     Route: 048

REACTIONS (1)
  - Toxic encephalopathy [Recovered/Resolved]
